FAERS Safety Report 17699927 (Version 3)
Quarter: 2020Q2

REPORT INFORMATION
  Report Type: Spontaneous
  Country: US (occurrence: US)
  Receive Date: 20200423
  Receipt Date: 20200529
  Transmission Date: 20200714
  Serious: Yes (Hospitalization, Other)
  Sender: FDA-Public Use
  Company Number: US-PFIZER INC-2020160584

PATIENT
  Age: 78 Year
  Sex: Female

DRUGS (1)
  1. INLYTA [Suspect]
     Active Substance: AXITINIB
     Indication: RENAL CANCER
     Dosage: 5 MG, 2X/DAY (EVERY 12 HOURS)
     Dates: start: 20200409, end: 20200506

REACTIONS (17)
  - Confusional state [Recovered/Resolved]
  - Vomiting [Recovering/Resolving]
  - Pain in extremity [Not Recovered/Not Resolved]
  - Gait disturbance [Unknown]
  - Cerebrovascular accident [Unknown]
  - Fatigue [Not Recovered/Not Resolved]
  - Chest pain [Unknown]
  - Hypoaesthesia [Unknown]
  - Hypotension [Unknown]
  - Blister [Not Recovered/Not Resolved]
  - Oral pain [Unknown]
  - Muscle spasms [Unknown]
  - Migraine [Recovered/Resolved]
  - Candida infection [Unknown]
  - Hypertension [Unknown]
  - Malaise [Recovering/Resolving]
  - Oropharyngeal pain [Unknown]
